FAERS Safety Report 6877297-1 (Version None)
Quarter: 2010Q3

REPORT INFORMATION
  Report Type: 
  Country: None (occurrence: None)
  Receive Date: 20100727
  Receipt Date: 20090826
  Transmission Date: 20110219
  Serious: No
  Sender: FDA-Public Use
  Company Number: US-ABBOTT-09P-163-0594664-00

PATIENT
  Age: 60 Year
  Sex: Female
  Weight: 88.076 kg

DRUGS (2)
  1. SYNTHROID [Suspect]
     Indication: THYROID NEOPLASM
     Dates: start: 20090819
  2. NORVASC [Concomitant]
     Indication: BLOOD PRESSURE

REACTIONS (5)
  - ABDOMINAL PAIN UPPER [None]
  - DEPRESSED MOOD [None]
  - FEELING JITTERY [None]
  - HEADACHE [None]
  - MOOD SWINGS [None]
